FAERS Safety Report 6930818-2 (Version None)
Quarter: 2010Q3

REPORT INFORMATION
  Report Type: 
  Country: None (occurrence: None)
  Receive Date: 20100818
  Receipt Date: 20100809
  Transmission Date: 20110219
  Serious: Yes (Hospitalization, Other)
  Sender: FDA-Public Use
  Company Number: FR-ABBOTT-10P-056-0657144-00

PATIENT
  Sex: Female

DRUGS (5)
  1. KALETRA [Suspect]
     Indication: PROPHYLAXIS AGAINST HIV INFECTION
     Route: 048
     Dates: start: 20100621, end: 20100627
  2. TRUVADA [Suspect]
     Indication: PROPHYLAXIS AGAINST HIV INFECTION
     Route: 048
     Dates: start: 20100621, end: 20100628
  3. LAMICTAL [Concomitant]
     Indication: EPILEPSY
     Dosage: 200 MG
     Dates: start: 20091101
  4. PRAVASTATIN SODIUM [Concomitant]
     Indication: DYSLIPIDAEMIA
  5. LEVOTHYROXINE SODIUM [Concomitant]
     Indication: HYPOTHYROIDISM

REACTIONS (8)
  - CHILLS [None]
  - CYTOLYTIC HEPATITIS [None]
  - ENANTHEMA [None]
  - FACE OEDEMA [None]
  - INFLUENZA LIKE ILLNESS [None]
  - PRURIGO [None]
  - PYREXIA [None]
  - RASH PAPULAR [None]
